FAERS Safety Report 8213078-4 (Version None)
Quarter: 2012Q1

REPORT INFORMATION
  Report Type: 
  Country: None (occurrence: None)
  Receive Date: 20120315
  Receipt Date: 20120312
  Transmission Date: 20120608
  Serious: Yes (Other)
  Sender: FDA-Public Use
  Company Number: US-ABBOTT-12P-163-0909055-00

PATIENT
  Age: 42 Year
  Sex: Male

DRUGS (2)
  1. TYLENOL W/ CODEINE NO. 3 [Concomitant]
     Indication: PAIN
  2. HUMIRA [Suspect]
     Indication: CROHN'S DISEASE
     Dates: start: 20111230, end: 20120211

REACTIONS (4)
  - FISTULA [None]
  - INFECTION [None]
  - WOUND SECRETION [None]
  - IMPAIRED HEALING [None]
